FAERS Safety Report 6193176-X (Version None)
Quarter: 2009Q2

REPORT INFORMATION
  Report Type: 
  Country: None (occurrence: None)
  Receive Date: 20090518
  Receipt Date: 20090508
  Transmission Date: 20091009
  Serious: Yes (Hospitalization, Disabling)
  Sender: FDA-Public Use
  Company Number: A0731197A

PATIENT
  Age: 76 Year
  Sex: Male

DRUGS (8)
  1. AVANDIA [Suspect]
     Dosage: 4MG TWICE PER DAY
     Route: 048
     Dates: start: 20040101, end: 20061001
  2. GLUCOPHAGE [Concomitant]
     Dates: start: 20040101
  3. METFORMIN HCL [Concomitant]
     Dates: start: 20040101
  4. LANTUS [Concomitant]
     Dates: start: 20000101
  5. AMARYL [Concomitant]
     Dates: start: 20030101, end: 20060101
  6. ZANTAC [Concomitant]
  7. XANAX [Concomitant]
  8. VICODIN [Concomitant]

REACTIONS (3)
  - CEREBROVASCULAR ACCIDENT [None]
  - INJURY [None]
  - MOVEMENT DISORDER [None]
